FAERS Safety Report 19397303 (Version 4)
Quarter: 2021Q3

REPORT INFORMATION
  Report Type: Report from Study
  Country: FR (occurrence: FR)
  Receive Date: 20210609
  Receipt Date: 20210829
  Transmission Date: 20211014
  Serious: Yes (Death, Other)
  Sender: FDA-Public Use
  Company Number: FR-ROCHE-2845731

PATIENT
  Age: 57 Year
  Sex: Male

DRUGS (16)
  1. IMIPENEM [Concomitant]
     Active Substance: IMIPENEM
  2. DEXAMETHASONE SODIUM PHOSPHATE. [Suspect]
     Active Substance: DEXAMETHASONE SODIUM PHOSPHATE
     Indication: COVID-19
     Route: 042
     Dates: start: 20210404, end: 20210408
  3. NICOTINE. [Concomitant]
     Active Substance: NICOTINE
  4. ATRACURIUM [Concomitant]
     Active Substance: ATRACURIUM
  5. DEXAMETHASONE SODIUM PHOSPHATE. [Suspect]
     Active Substance: DEXAMETHASONE SODIUM PHOSPHATE
     Route: 042
     Dates: start: 20210817, end: 20210817
  6. HYPNOVEL [Concomitant]
     Active Substance: MIDAZOLAM
  7. NORADRENALINE [Concomitant]
     Active Substance: NOREPINEPHRINE
  8. TOCILIZUMAB. [Suspect]
     Active Substance: TOCILIZUMAB
     Indication: COVID-19
     Dosage: 20 MG/ML
     Route: 041
     Dates: start: 20210404, end: 20210404
  9. TOCILIZUMAB. [Suspect]
     Active Substance: TOCILIZUMAB
     Dosage: 20MG/ML
     Route: 041
     Dates: start: 20210406, end: 20210406
  10. HYDROXYZINE [Concomitant]
     Active Substance: HYDROXYZINE HYDROCHLORIDE
  11. MOVICOL [Concomitant]
     Active Substance: POLYETHYLENE GLYCOL 3350\POTASSIUM CHLORIDE\SODIUM BICARBONATE\SODIUM CHLORIDE
  12. NICARDIPINE [Concomitant]
     Active Substance: NICARDIPINE
  13. FOLINIC ACID [Concomitant]
     Active Substance: LEUCOVORIN
  14. SUFENTANIL [Concomitant]
     Active Substance: SUFENTANIL
  15. CLAFORAN [Concomitant]
     Active Substance: CEFOTAXIME SODIUM
  16. DEXAMETHASONE SODIUM PHOSPHATE. [Suspect]
     Active Substance: DEXAMETHASONE SODIUM PHOSPHATE
     Route: 042
     Dates: start: 20210412, end: 20210416

REACTIONS (3)
  - Pneumonia [Not Recovered/Not Resolved]
  - Shock [Fatal]
  - Pneumonia bacterial [Not Recovered/Not Resolved]

NARRATIVE: CASE EVENT DATE: 20210418
